FAERS Safety Report 24840620 (Version 2)
Quarter: 2025Q2

REPORT INFORMATION
  Report Type: Report from Study
  Country: US (occurrence: US)
  Receive Date: 20250114
  Receipt Date: 20250513
  Transmission Date: 20250717
  Serious: Yes (Death, Hospitalization, Other)
  Sender: TAKEDA
  Company Number: US-TAKEDA-2024TUS128997

PATIENT
  Sex: Male
  Weight: 67 kg

DRUGS (15)
  1. TEDUGLUTIDE [Suspect]
     Active Substance: TEDUGLUTIDE
     Indication: Short-bowel syndrome
     Dosage: UNK UNK, QD
     Dates: start: 202301
  2. TEDUGLUTIDE [Suspect]
     Active Substance: TEDUGLUTIDE
     Indication: Small intestinal resection
  3. TEDUGLUTIDE [Suspect]
     Active Substance: TEDUGLUTIDE
  4. TEDUGLUTIDE [Suspect]
     Active Substance: TEDUGLUTIDE
  5. NIFEDIPINE [Concomitant]
     Active Substance: NIFEDIPINE
  6. FOLIC ACID [Concomitant]
     Active Substance: FOLIC ACID
  7. COREG [Concomitant]
     Active Substance: CARVEDILOL
  8. AMBIEN [Concomitant]
     Active Substance: ZOLPIDEM TARTRATE
  9. CLONIDINE [Concomitant]
     Active Substance: CLONIDINE
  10. DULOXETINE [Concomitant]
     Active Substance: DULOXETINE
  11. ELIQUIS [Concomitant]
     Active Substance: APIXABAN
  12. KLONOPIN [Concomitant]
     Active Substance: CLONAZEPAM
  13. PANTOPRAZOLE [Concomitant]
     Active Substance: PANTOPRAZOLE
  14. PROMETHAZINE [Concomitant]
     Active Substance: PROMETHAZINE HYDROCHLORIDE
  15. SEVELAMER [Concomitant]
     Active Substance: SEVELAMER

REACTIONS (3)
  - Death [Fatal]
  - Myocardial infarction [Unknown]
  - Treatment noncompliance [Unknown]
